FAERS Safety Report 15487606 (Version 1)
Quarter: 2018Q4

REPORT INFORMATION
  Report Type: Spontaneous
  Country: US (occurrence: US)
  Receive Date: 20181011
  Receipt Date: 20181011
  Transmission Date: 20190205
  Serious: Yes (Hospitalization)
  Sender: FDA-Public Use
  Company Number: US-ASTELLAS-2018US043516

PATIENT
  Age: 70 Year
  Sex: Male

DRUGS (1)
  1. XTANDI [Suspect]
     Active Substance: ENZALUTAMIDE
     Indication: PRODUCT USED FOR UNKNOWN INDICATION
     Dosage: UNK UNK, ONCE DAILY
     Route: 048
     Dates: start: 20150520

REACTIONS (3)
  - Urinary tract infection [Recovered/Resolved]
  - Urethral obstruction [Recovered/Resolved]
  - Urine flow decreased [Recovered/Resolved]

NARRATIVE: CASE EVENT DATE: 20180913
